FAERS Safety Report 24166275 (Version 3)
Quarter: 2025Q4

REPORT INFORMATION
  Report Type: Spontaneous
  Country: CA (occurrence: CA)
  Receive Date: 20240802
  Receipt Date: 20251227
  Transmission Date: 20260117
  Serious: Yes (Other)
  Sender: CELLTRION
  Company Number: CA-CELLTRION INC.-2022CA022701

PATIENT

DRUGS (9)
  1. TRUXIMA [Suspect]
     Active Substance: RITUXIMAB-ABBS
     Indication: Vasculitis
     Dosage: 750 MG, QWX 4 WEEKS
     Route: 042
     Dates: start: 20220428
  2. TRUXIMA [Suspect]
     Active Substance: RITUXIMAB-ABBS
     Indication: Carcinoid tumour
     Dosage: INFUSION #1
  3. TRUXIMA [Suspect]
     Active Substance: RITUXIMAB-ABBS
     Dosage: 500MG INFUSION #2
     Dates: start: 20220428
  4. TRUXIMA [Suspect]
     Active Substance: RITUXIMAB-ABBS
     Dosage: 750MG INFUSION #3
     Route: 042
     Dates: start: 20220428
  5. TRUXIMA [Suspect]
     Active Substance: RITUXIMAB-ABBS
     Dosage: 750MG INFUSION #4
     Route: 042
     Dates: start: 20220428
  6. TRUXIMA [Suspect]
     Active Substance: RITUXIMAB-ABBS
     Dosage: 1000 MILLIGRAM
     Route: 042
     Dates: start: 20220428
  7. TRUXIMA [Suspect]
     Active Substance: RITUXIMAB-ABBS
     Dosage: 1000 MILLIGRAM (INF #6)
     Route: 042
     Dates: start: 20220428
  8. TRUXIMA [Suspect]
     Active Substance: RITUXIMAB-ABBS
     Dosage: 1000 MILLIGRAM INF #7
     Route: 042
     Dates: start: 20220428
  9. TRUXIMA [Suspect]
     Active Substance: RITUXIMAB-ABBS
     Dosage: 500MG/ EVERY 6 MONTHS
     Route: 042
     Dates: start: 20250604

REACTIONS (8)
  - Arteriosclerosis [Not Recovered/Not Resolved]
  - Cardiac disorder [Unknown]
  - Blood pressure increased [Unknown]
  - Unevaluable event [Unknown]
  - Skin discolouration [Unknown]
  - Visual impairment [Unknown]
  - Visual impairment [Not Recovered/Not Resolved]
  - Erythema [Unknown]
